FAERS Safety Report 24395926 (Version 1)
Quarter: 2024Q4

REPORT INFORMATION
  Report Type: Spontaneous
  Country: US (occurrence: US)
  Receive Date: 20241004
  Receipt Date: 20241004
  Transmission Date: 20250114
  Serious: Yes (Other)
  Sender: DR REDDYS
  Company Number: US-DRL-USA-LIT/USA/24/0014490

PATIENT
  Age: 22 Year
  Sex: Female

DRUGS (2)
  1. NORETHINDRONE [Suspect]
     Active Substance: NORETHINDRONE
     Indication: Uterine haemorrhage
     Route: 048
  2. TESTOSTERONE CYPIONATE [Suspect]
     Active Substance: TESTOSTERONE CYPIONATE
     Indication: Gender reassignment therapy
     Route: 030

REACTIONS (4)
  - Hepatic adenoma [Recovered/Resolved]
  - Hepatic necrosis [Recovered/Resolved]
  - Hepatic haemorrhage [Recovered/Resolved]
  - Product use in unapproved indication [Unknown]
